FAERS Safety Report 17314591 (Version 1)
Quarter: 2020Q1

REPORT INFORMATION
  Report Type: Spontaneous
  Country: US (occurrence: US)
  Receive Date: 20200123
  Receipt Date: 20200123
  Transmission Date: 20200409
  Serious: No
  Sender: FDA-Public Use
  Company Number: None

PATIENT
  Sex: Male
  Weight: 90 kg

DRUGS (10)
  1. ACYCLOVIR. [Concomitant]
     Active Substance: ACYCLOVIR
  2. LEVEMIR [Concomitant]
     Active Substance: INSULIN DETEMIR
  3. CALCIUM ACETATE. [Concomitant]
     Active Substance: CALCIUM ACETATE
  4. COSOPT PF [Concomitant]
     Active Substance: DORZOLAMIDE HYDROCHLORIDE\TIMOLOL MALEATE
  5. AMLODIPINE [Concomitant]
     Active Substance: AMLODIPINE BESYLATE
  6. XALATAN [Concomitant]
     Active Substance: LATANOPROST
  7. DUREZOL [Concomitant]
     Active Substance: DIFLUPREDNATE
  8. COLACE [Concomitant]
     Active Substance: DOCUSATE SODIUM
  9. XPOVIO [Suspect]
     Active Substance: SELINEXOR
     Indication: PLASMA CELL MYELOMA
     Dosage: ?          OTHER FREQUENCY:ONCE WEEKLY;?
     Route: 048
     Dates: start: 20191107, end: 20200123
  10. NOVOLOG [Concomitant]
     Active Substance: INSULIN ASPART

REACTIONS (1)
  - Thrombocytopenia [None]
